FAERS Safety Report 23346555 (Version 1)
Quarter: 2023Q4

REPORT INFORMATION
  Report Type: Spontaneous
  Country: US (occurrence: US)
  Receive Date: 20231228
  Receipt Date: 20231228
  Transmission Date: 20240109
  Serious: No
  Sender: FDA-Public Use
  Company Number: US-009507513-2312USA005530

PATIENT
  Age: 80 Year
  Sex: Female

DRUGS (5)
  1. NOXAFIL [Suspect]
     Active Substance: POSACONAZOLE
     Indication: Fungal infection
     Dosage: 300 MILLIGRAM, QD
  2. NOXAFIL [Suspect]
     Active Substance: POSACONAZOLE
     Dosage: 217 NANOGRAM PER MILLIGRAM (6 DAYS)
  3. NOXAFIL [Suspect]
     Active Substance: POSACONAZOLE
     Dosage: 300 MILLIGRAM, BID (2 DOSES)
     Route: 042
  4. NOXAFIL [Suspect]
     Active Substance: POSACONAZOLE
     Dosage: 300 MILLIGRAM, QD
     Route: 042
  5. NOXAFIL [Suspect]
     Active Substance: POSACONAZOLE
     Dosage: 1751 NANOGRAM PER MILLIGRAM (6 DAYS)

REACTIONS (4)
  - Drug level below therapeutic [Unknown]
  - Wrong technique in product usage process [Unknown]
  - Incorrect dose administered [Unknown]
  - Incorrect route of product administration [Unknown]
